FAERS Safety Report 8569139-3 (Version None)
Quarter: 2012Q3

REPORT INFORMATION
  Report Type: 
  Country: None (occurrence: None)
  Receive Date: 20120803
  Receipt Date: 20120710
  Transmission Date: 20120928
  Serious: No
  Sender: FDA-Public Use
  Company Number: US-ABBOTT-12P-163-0917269-00

PATIENT
  Sex: Male
  Weight: 72.64 kg

DRUGS (1)
  1. NIASPAN [Suspect]
     Indication: BLOOD CHOLESTEROL INCREASED
     Route: 048
     Dates: start: 20120315, end: 20120316

REACTIONS (6)
  - PARAESTHESIA [None]
  - UNEVALUABLE EVENT [None]
  - OCULAR HYPERAEMIA [None]
  - BURNING SENSATION [None]
  - ERYTHEMA [None]
  - HYPERHIDROSIS [None]
